FAERS Safety Report 5408208-3 (Version None)
Quarter: 2007Q3

REPORT INFORMATION
  Report Type: 
  Country: None (occurrence: None)
  Receive Date: 20070806
  Receipt Date: 20070806
  Transmission Date: 20080115
  Serious: Yes (Death)
  Sender: FDA-Public Use
  Company Number: None

PATIENT
  Sex: Female
  Weight: 58 kg

DRUGS (4)
  1. BUSULFAN [Suspect]
     Dosage: 640 MG
     Dates: end: 20070610
  2. CYTARABINE [Suspect]
     Dosage: 26080 MG
     Dates: end: 20070415
  3. ETOPOSIDE [Suspect]
     Dosage: 7260 MG
     Dates: end: 20070614
  4. G-CSF (FILGRASTIM, AMGEN) [Suspect]
     Dosage: 11510 MG
     Dates: end: 20070624

REACTIONS (6)
  - CLOSTRIDIUM DIFFICILE COLITIS [None]
  - ENTEROCUTANEOUS FISTULA [None]
  - FEBRILE NEUTROPENIA [None]
  - METABOLIC DISORDER [None]
  - SEPSIS [None]
  - STEM CELL TRANSPLANT [None]
